FAERS Safety Report 7446499-8 (Version None)
Quarter: 2011Q2

REPORT INFORMATION
  Report Type: 
  Country: None (occurrence: None)
  Receive Date: 20110429
  Receipt Date: 20100726
  Transmission Date: 20111010
  Serious: No
  Sender: FDA-Public Use
  Company Number: US-ASTRAZENECA-2010SE34809

PATIENT
  Age: 75 Year
  Sex: Female
  Weight: 76.2 kg

DRUGS (3)
  1. NEXIUM [Suspect]
     Indication: GASTROOESOPHAGEAL REFLUX DISEASE
     Route: 048
     Dates: start: 20100721
  2. BENICAR [Concomitant]
  3. CRESTOR [Concomitant]

REACTIONS (1)
  - SKIN DISCOLOURATION [None]
